FAERS Safety Report 9828373 (Version 1)
Quarter: 2014Q1

REPORT INFORMATION
  Report Type: Spontaneous
  Country: JP (occurrence: JP)
  Receive Date: 20140117
  Receipt Date: 20140117
  Transmission Date: 20141002
  Serious: Yes (Other)
  Sender: FDA-Public Use
  Company Number: JP-GLAXOSMITHKLINE-B0960649A

PATIENT
  Sex: Male

DRUGS (4)
  1. ALLERMIST [Suspect]
     Indication: RHINITIS ALLERGIC
     Route: 045
     Dates: start: 201306
  2. TACROLIMUS HYDRATE [Concomitant]
     Indication: IMMUNOSUPPRESSION
     Route: 065
     Dates: start: 2011
  3. CELLCEPT [Concomitant]
     Indication: IMMUNOSUPPRESSION
     Route: 048
     Dates: start: 2011
  4. MEDROL [Concomitant]
     Indication: IMMUNOSUPPRESSION
     Route: 048
     Dates: start: 2011

REACTIONS (11)
  - Convulsion [Unknown]
  - Oedema peripheral [Not Recovered/Not Resolved]
  - Muscle spasms [Not Recovered/Not Resolved]
  - Condition aggravated [Unknown]
  - Chronic sinusitis [Unknown]
  - Erythema [Unknown]
  - Local swelling [Unknown]
  - Sensory disturbance [Unknown]
  - Skin discolouration [Unknown]
  - Sensory disturbance [Unknown]
  - Tinnitus [Unknown]
